FAERS Safety Report 11779303 (Version 1)
Quarter: 2015Q4

REPORT INFORMATION
  Report Type: Spontaneous
  Country: SE (occurrence: SE)
  Receive Date: 20151125
  Receipt Date: 20151125
  Transmission Date: 20160304
  Serious: Yes (Hospitalization)
  Sender: FDA-Public Use
  Company Number: SE-ASTRAZENECA-2015SF11852

PATIENT
  Age: 55 Year
  Sex: Male

DRUGS (16)
  1. ALVEDON [Concomitant]
     Active Substance: ACETAMINOPHEN
  2. ELOCON [Concomitant]
     Active Substance: MOMETASONE FUROATE
  3. LANTUS [Concomitant]
     Active Substance: INSULIN GLARGINE
  4. LACTULOSE. [Concomitant]
     Active Substance: LACTULOSE
     Dosage: 670 MG/ML
     Route: 048
  5. TROMBYL [Concomitant]
     Active Substance: ASPIRIN
  6. EZETROL [Concomitant]
     Active Substance: EZETIMIBE
  7. FORXIGA [Suspect]
     Active Substance: DAPAGLIFLOZIN
     Indication: TYPE 2 DIABETES MELLITUS
     Route: 048
     Dates: start: 20150605, end: 20150906
  8. RAMIPRIL. [Concomitant]
     Active Substance: RAMIPRIL
  9. OXASCAND [Concomitant]
     Active Substance: OXAZEPAM
  10. DAIVOBET [Concomitant]
     Active Substance: BETAMETHASONE DIPROPIONATE\CALCIPOTRIENE
     Dosage: 50 MICROGRAM/G + 0.5 MG/G
  11. NOVORAPID [Concomitant]
     Active Substance: INSULIN ASPART
     Dosage: 100 E/ML, SOLUTION FOR INJECTION IN PRE-FILLED INJECTORS
  12. GLYCERYL TRINITRATE [Concomitant]
     Active Substance: NITROGLYCERIN
     Dosage: 0.4 MG/DOSE
     Route: 060
  13. METOPROLOL [Concomitant]
     Active Substance: METOPROLOL
  14. PROTOPIC [Concomitant]
     Active Substance: TACROLIMUS
  15. AMARYL [Concomitant]
     Active Substance: GLIMEPIRIDE
  16. LIPANTHYL [Concomitant]
     Active Substance: FENOFIBRATE

REACTIONS (6)
  - Hyponatraemia [Unknown]
  - Hallucination, visual [Unknown]
  - Diabetic ketoacidosis [Recovered/Resolved]
  - Headache [Unknown]
  - Hypophagia [Unknown]
  - Nausea [Unknown]

NARRATIVE: CASE EVENT DATE: 20150906
